FAERS Safety Report 15227440 (Version 1)
Quarter: 2018Q3

REPORT INFORMATION
  Report Type: Spontaneous
  Country: US (occurrence: US)
  Receive Date: 20180801
  Receipt Date: 20180801
  Transmission Date: 20181010
  Serious: Yes (Other)
  Sender: FDA-Public Use
  Company Number: US-PFIZER INC-2018303613

PATIENT
  Age: 75 Year
  Sex: Male

DRUGS (1)
  1. VIAGRA [Suspect]
     Active Substance: SILDENAFIL CITRATE
     Dosage: 3 DF, UNK
     Dates: start: 20180725

REACTIONS (6)
  - Intentional product misuse [Unknown]
  - Feeling hot [Unknown]
  - Penile pain [Not Recovered/Not Resolved]
  - Erection increased [Not Recovered/Not Resolved]
  - Dizziness [Unknown]
  - Penis disorder [Unknown]
